FAERS Safety Report 12917662 (Version 2)
Quarter: 2016Q4

REPORT INFORMATION
  Report Type: Spontaneous
  Country: US (occurrence: US)
  Receive Date: 20161107
  Receipt Date: 20161205
  Transmission Date: 20170207
  Serious: Yes (Hospitalization)
  Sender: FDA-Public Use
  Company Number: US-PFIZER INC-2016512867

PATIENT
  Age: 65 Year
  Sex: Male

DRUGS (1)
  1. SUTENT [Suspect]
     Active Substance: SUNITINIB MALATE
     Indication: RENAL CELL CARCINOMA STAGE IV
     Dosage: 50 MG, CYCLIC (1 CAPSULE BY MOUTH DAILY FOR 4 WEEKS ON THEN 2 WEEKS OFF)
     Route: 048
     Dates: start: 20160923

REACTIONS (2)
  - Oral discomfort [Recovered/Resolved]
  - Fatigue [Recovered/Resolved]
